FAERS Safety Report 7349880-0 (Version None)
Quarter: 2011Q1

REPORT INFORMATION
  Report Type: 
  Country: None (occurrence: None)
  Receive Date: 20110314
  Receipt Date: 20110310
  Transmission Date: 20110831
  Serious: No
  Sender: FDA-Public Use
  Company Number: US-TEVA-269504USA

PATIENT
  Sex: Female
  Weight: 57.658 kg

DRUGS (1)
  1. PLAN B ONE-STEP [Suspect]
     Indication: POST COITAL CONTRACEPTION
     Route: 048
     Dates: start: 20110208, end: 20110208

REACTIONS (2)
  - MENSTRUATION IRREGULAR [None]
  - MENSTRUATION DELAYED [None]
